FAERS Safety Report 5136692-1 (Version None)
Quarter: 2006Q4

REPORT INFORMATION
  Report Type: 
  Country: None (occurrence: None)
  Receive Date: 20061023
  Receipt Date: 20061005
  Transmission Date: 20070319
  Serious: Yes (Other)
  Sender: FDA-Public Use
  Company Number: 2006126976

PATIENT
  Sex: Female

DRUGS (3)
  1. BEXTRA [Suspect]
     Dosage: ORAL
     Route: 048
  2. CELEBREX [Suspect]
     Dosage: ORAL
     Route: 048
  3. VIOXX [Suspect]
     Dosage: ORAL
     Route: 048
     Dates: start: 19990601, end: 20011231

REACTIONS (1)
  - ISCHAEMIC STROKE [None]
